FAERS Safety Report 14556855 (Version 3)
Quarter: 2018Q2

REPORT INFORMATION
  Report Type: Spontaneous
  Country: US (occurrence: US)
  Receive Date: 20180221
  Receipt Date: 20180516
  Transmission Date: 20180711
  Serious: No
  Sender: FDA-Public Use
  Company Number: US-ASTRAZENECA-2017SE80990

PATIENT
  Age: 22900 Day
  Sex: Male
  Weight: 131.5 kg

DRUGS (3)
  1. TUDORZA PRESSAIR [Suspect]
     Active Substance: ACLIDINIUM BROMIDE
     Route: 055
     Dates: start: 201508
  2. TUDORZA PRESSAIR [Suspect]
     Active Substance: ACLIDINIUM BROMIDE
     Route: 055
     Dates: start: 20160908
  3. METFORMIN [Concomitant]
     Active Substance: METFORMIN HYDROCHLORIDE
     Indication: DIABETES MELLITUS
     Dates: start: 2015

REACTIONS (5)
  - Circumstance or information capable of leading to medication error [Unknown]
  - Type 2 diabetes mellitus [Unknown]
  - Drug dose omission [Unknown]
  - Intentional device misuse [Unknown]
  - Device malfunction [Unknown]
